FAERS Safety Report 4417265-2 (Version None)
Quarter: 2004Q3

REPORT INFORMATION
  Report Type: 
  Country: None (occurrence: None)
  Receive Date: 20040806
  Receipt Date: 20040504
  Transmission Date: 20050211
  Serious: Yes (Other)
  Sender: FDA-Public Use
  Company Number: BE-GLAXOSMITHKLINE-B0331818A

PATIENT
  Age: 60 Year
  Sex: Female
  Weight: 70 kg

DRUGS (5)
  1. LAMICTAL [Suspect]
     Indication: NEUROPATHIC PAIN
     Dosage: 10MG TWICE PER DAY
     Route: 048
     Dates: start: 20031001, end: 20031030
  2. FLUNITRAZEPAM [Concomitant]
  3. DIXERAN [Concomitant]
  4. PARACETAMOL [Concomitant]
  5. LIVIAL [Concomitant]

REACTIONS (4)
  - AGEUSIA [None]
  - DYSGEUSIA [None]
  - OESOPHAGEAL PAIN [None]
  - SWOLLEN TONGUE [None]
